FAERS Safety Report 12545571 (Version 1)
Quarter: 2016Q3

REPORT INFORMATION
  Report Type: Spontaneous
  Country: CA (occurrence: CA)
  Receive Date: 20160711
  Receipt Date: 20160711
  Transmission Date: 20161109
  Serious: Yes (Hospitalization)
  Sender: FDA-Public Use
  Company Number: CA-ABBVIE-16P-028-1672167-00

PATIENT
  Age: 24 Year
  Sex: Female
  Weight: 55.84 kg

DRUGS (2)
  1. LUPRON DEPOT [Suspect]
     Active Substance: LEUPROLIDE ACETATE
     Indication: ENDOMETRIOSIS
     Route: 030
  2. MIRENA [Concomitant]
     Active Substance: LEVONORGESTREL
     Indication: PRODUCT USED FOR UNKNOWN INDICATION

REACTIONS (8)
  - Bone pain [Recovered/Resolved]
  - Nasopharyngitis [Recovered/Resolved]
  - Cystitis [Recovered/Resolved]
  - Rib fracture [Recovered/Resolved]
  - Immune system disorder [Recovered/Resolved]
  - Fungal infection [Recovered/Resolved]
  - Pelvic infection [Recovered/Resolved]
  - Influenza [Recovered/Resolved]
